FAERS Safety Report 11632053 (Version 7)
Quarter: 2017Q4

REPORT INFORMATION
  Report Type: Report from Study
  Country: JP (occurrence: JP)
  Receive Date: 20151015
  Receipt Date: 20171219
  Transmission Date: 20180320
  Serious: Yes (Hospitalization, Other)
  Sender: FDA-Public Use
  Company Number: JP-BRISTOL-MYERS SQUIBB COMPANY-BMS-2015-068411

PATIENT
  Age: 67 Year
  Sex: Male
  Weight: 61 kg

DRUGS (24)
  1. LENDORMIN [Concomitant]
     Active Substance: BROTIZOLAM
     Indication: INSOMNIA
     Dosage: .125 MG, SINGLE
     Route: 048
  2. AMOBAN [Concomitant]
     Active Substance: ZOPICLONE
     Indication: INSOMNIA
     Dosage: 3.75 MG, SINGLE
     Route: 048
     Dates: start: 20140906
  3. MYSLEE [Concomitant]
     Active Substance: ZOLPIDEM TARTRATE
     Indication: INSOMNIA
     Dosage: 5 MG, SINGLE
     Route: 048
     Dates: start: 20141023, end: 2015
  4. APIXABAN [Suspect]
     Active Substance: APIXABAN
     Indication: CEREBROVASCULAR ACCIDENT PROPHYLAXIS
     Dosage: 5 MG, BID
     Route: 048
     Dates: start: 20140612, end: 20150725
  5. PATANOL [Concomitant]
     Active Substance: OLOPATADINE HYDROCHLORIDE
     Indication: CONJUNCTIVITIS ALLERGIC
     Dosage: 4 IU, SINGLE
     Route: 047
  6. ADALAT [Concomitant]
     Active Substance: NIFEDIPINE
     Indication: HYPERTENSION
     Dosage: 20 MG, SINGLE
     Route: 048
     Dates: end: 20140831
  7. APIXABAN [Suspect]
     Active Substance: APIXABAN
     Indication: PRODUCT USED FOR UNKNOWN INDICATION
     Dosage: 5 MG, BID
     Route: 048
     Dates: start: 20151222
  8. AZUNOL                             /00620101/ [Concomitant]
     Active Substance: GUAIAZULENE
     Indication: PRODUCT USED FOR UNKNOWN INDICATION
     Dosage: UNK UNK, SINGLE
     Route: 062
     Dates: start: 20150319
  9. APIXABAN [Suspect]
     Active Substance: APIXABAN
     Indication: PRODUCT USED FOR UNKNOWN INDICATION
     Dosage: 2.5 MG, BID
     Route: 048
     Dates: start: 20150929, end: 20151221
  10. LIVOSTIN [Concomitant]
     Active Substance: LEVOCABASTINE HYDROCHLORIDE
     Indication: CONJUNCTIVITIS ALLERGIC
     Dosage: 4 IU, SINGLE
     Route: 047
  11. ADALAT [Concomitant]
     Active Substance: NIFEDIPINE
     Indication: PRODUCT USED FOR UNKNOWN INDICATION
     Dosage: 20 MG, SINGLE
     Route: 048
     Dates: start: 20141104, end: 20160321
  12. HARNAL [Concomitant]
     Active Substance: TAMSULOSIN HYDROCHLORIDE
     Indication: BENIGN PROSTATIC HYPERPLASIA
     Dosage: .2 MG, SINGLE
     Route: 048
     Dates: start: 20140902
  13. FLUITRAN [Concomitant]
     Active Substance: TRICHLORMETHIAZIDE
     Indication: HYPERTENSION
     Dosage: 1 MG, SINGLE
     Route: 048
     Dates: start: 20140902
  14. SAWACILLIN [Concomitant]
     Active Substance: AMOXICILLIN
     Indication: PROPHYLAXIS
     Dosage: 1000 MG, SINGLE
     Route: 048
     Dates: start: 20140909
  15. URIEF [Concomitant]
     Active Substance: SILODOSIN
     Indication: BENIGN PROSTATIC HYPERPLASIA
     Dosage: 8 MG, SINGLE
     Route: 048
     Dates: start: 20140901, end: 2015
  16. URIEF [Concomitant]
     Active Substance: SILODOSIN
     Indication: PRODUCT USED FOR UNKNOWN INDICATION
     Dosage: 8 MG, SINGLE
     Route: 048
     Dates: start: 20150430, end: 20150730
  17. AVOLVE [Concomitant]
     Active Substance: DUTASTERIDE
     Indication: PRODUCT USED FOR UNKNOWN INDICATION
     Dosage: .5 MG, SINGLE
     Route: 048
     Dates: start: 20140902, end: 20150731
  18. APIXABAN [Suspect]
     Active Substance: APIXABAN
     Indication: PRODUCT USED FOR UNKNOWN INDICATION
     Dosage: 5 MG, BID
     Route: 048
     Dates: start: 20150828, end: 20150928
  19. AVOLVE [Concomitant]
     Active Substance: DUTASTERIDE
     Indication: BENIGN PROSTATIC HYPERPLASIA
     Dosage: .5 MG, SINGLE
     Route: 048
     Dates: end: 20140831
  20. CRAVIT [Concomitant]
     Active Substance: LEVOFLOXACIN
     Indication: BENIGN PROSTATIC HYPERPLASIA
     Dosage: 500 MG, SINGLE
     Route: 048
     Dates: start: 20140707
  21. SEPAMIT-R [Concomitant]
     Active Substance: NIFEDIPINE
     Indication: HYPERTENSION
     Dosage: 10 MG, SINGLE
     Route: 048
     Dates: start: 20140902
  22. APIXABAN [Suspect]
     Active Substance: APIXABAN
     Indication: PRODUCT USED FOR UNKNOWN INDICATION
     Dosage: 5 MG, BID
     Route: 048
     Dates: start: 20150729, end: 20150730
  23. APIXABAN [Suspect]
     Active Substance: APIXABAN
     Indication: PRODUCT USED FOR UNKNOWN INDICATION
     Dosage: 5 MG, BID
     Route: 048
     Dates: start: 20150807, end: 20150818
  24. NU-LOTAN [Concomitant]
     Active Substance: LOSARTAN POTASSIUM
     Indication: HYPERTENSION
     Dosage: 50 MG, SINGLE
     Route: 048
     Dates: start: 20140902

REACTIONS (10)
  - Transurethral prostatectomy [Unknown]
  - Post procedural haematuria [Recovering/Resolving]
  - Off label use [Unknown]
  - Bladder irrigation [Unknown]
  - Epistaxis [Recovering/Resolving]
  - Urinary retention [Recovering/Resolving]
  - Bladder catheterisation [Unknown]
  - Benign prostatic hyperplasia [Recovering/Resolving]
  - Post procedural haemorrhage [Recovered/Resolved]
  - Cancer surgery [Recovered/Resolved]

NARRATIVE: CASE EVENT DATE: 20140918
